FAERS Safety Report 17019186 (Version 1)
Quarter: 2019Q4

REPORT INFORMATION
  Report Type: Other
  Country: ZA (occurrence: ZA)
  Receive Date: 20191112
  Receipt Date: 20191112
  Transmission Date: 20200122
  Serious: Yes (Death, Congenital Anomaly, Other)
  Sender: FDA-Public Use
  Company Number: ZA-MACLEODS PHARMACEUTICALS US LTD-MAC2019023576

PATIENT

DRUGS (4)
  1. LAMIVUDINE. [Suspect]
     Active Substance: LAMIVUDINE
     Indication: PRODUCT USED FOR UNKNOWN INDICATION
     Dosage: UNK, 1 COURSE OF LAMIVUDINE DURING FIRST TRIMESTER
     Route: 064
  2. NEVIRAPINE. [Suspect]
     Active Substance: NEVIRAPINE
     Indication: PRODUCT USED FOR UNKNOWN INDICATION
     Dosage: UNK,1 COURSE OF NEVIRAPINE DURING FIRST TRIMESTER
     Route: 064
  3. ATRIPLA [Suspect]
     Active Substance: EFAVIRENZ\EMTRICITABINE\TENOFOVIR DISOPROXIL FUMARATE
     Indication: PRODUCT USED FOR UNKNOWN INDICATION
     Dosage: UNK, 1 COURSE OF EFAVIRENZ+TENOFOVIR DISOPROXIL FUMARATE+EMTRICITABINE (ATRIPLA, ATR) IN THE SECOND
     Route: 064
  4. VIREAD [Suspect]
     Active Substance: TENOFOVIR DISOPROXIL FUMARATE
     Indication: PRODUCT USED FOR UNKNOWN INDICATION
     Dosage: UNK,  1 COURSE OF VIREAD, TDF (TENOFOVIR DISOPROXIL FUMARATE) DURING FIRST TRIMESTER
     Route: 064

REACTIONS (2)
  - Meningomyelocele [Fatal]
  - Foetal exposure during pregnancy [Unknown]
